FAERS Safety Report 18463480 (Version 4)
Quarter: 2022Q2

REPORT INFORMATION
  Report Type: Spontaneous
  Country: JP (occurrence: JP)
  Receive Date: 20201104
  Receipt Date: 20220610
  Transmission Date: 20220720
  Serious: Yes (Other)
  Sender: FDA-Public Use
  Company Number: JP-ELI_LILLY_AND_COMPANY-JP202010013552

PATIENT
  Age: 24 Year
  Sex: Male
  Weight: 39.2 kg

DRUGS (25)
  1. ADCIRCA [Suspect]
     Active Substance: TADALAFIL
     Indication: Pulmonary arterial hypertension
     Dosage: 40 MG, DAILY
     Route: 048
  2. UPTRAVI [Suspect]
     Active Substance: SELEXIPAG
     Indication: Pulmonary arterial hypertension
     Dosage: 0.2 MG, DAILY
     Route: 048
     Dates: start: 20170920, end: 20171003
  3. UPTRAVI [Suspect]
     Active Substance: SELEXIPAG
     Dosage: 0.4 MG, DAILY
     Route: 048
     Dates: start: 20171004, end: 20171017
  4. UPTRAVI [Suspect]
     Active Substance: SELEXIPAG
     Dosage: 0.6 MG, BID
     Route: 048
     Dates: start: 20171018, end: 20171031
  5. UPTRAVI [Suspect]
     Active Substance: SELEXIPAG
     Dosage: 0.4 MG, BID
     Route: 048
     Dates: start: 20171101, end: 20171118
  6. UPTRAVI [Suspect]
     Active Substance: SELEXIPAG
     Dosage: 1 MG, DAILY
     Route: 048
     Dates: start: 20171129, end: 20171213
  7. UPTRAVI [Suspect]
     Active Substance: SELEXIPAG
     Dosage: 0.6 MG, BID
     Route: 048
     Dates: start: 20171213, end: 20180807
  8. UPTRAVI [Suspect]
     Active Substance: SELEXIPAG
     Dosage: 0.4 MG, BID
     Route: 048
     Dates: start: 20180808, end: 20181211
  9. UPTRAVI [Suspect]
     Active Substance: SELEXIPAG
     Dosage: 0.6 MG, BID
     Route: 048
     Dates: start: 20181212, end: 20190611
  10. UPTRAVI [Suspect]
     Active Substance: SELEXIPAG
     Dosage: 0.4 MG, BID
     Route: 048
     Dates: start: 20190612
  11. OLMESARTAN MEDOXOMIL [Suspect]
     Active Substance: OLMESARTAN MEDOXOMIL
     Indication: Product used for unknown indication
     Dosage: 10 MG, DAILY
     Route: 048
     Dates: end: 20180328
  12. OLMESARTAN MEDOXOMIL [Suspect]
     Active Substance: OLMESARTAN MEDOXOMIL
     Dosage: 5 MG, DAILY
     Route: 048
     Dates: start: 20180411
  13. LASIX [Suspect]
     Active Substance: FUROSEMIDE
     Indication: Product used for unknown indication
     Dosage: 40 MG, DAILY
     Route: 048
     Dates: end: 20180327
  14. LASIX [Suspect]
     Active Substance: FUROSEMIDE
     Dosage: 20 MG, DAILY
     Route: 048
     Dates: start: 20180328
  15. LASIX [Suspect]
     Active Substance: FUROSEMIDE
     Dosage: 40 MG, DAILY
     Route: 048
     Dates: start: 20180411, end: 20180411
  16. LASIX [Suspect]
     Active Substance: FUROSEMIDE
     Dosage: 20 MG, DAILY
     Route: 048
     Dates: start: 20180412
  17. SPIRONOLACTONE [Suspect]
     Active Substance: SPIRONOLACTONE
     Indication: Product used for unknown indication
     Dosage: 25 MG, UNKNOWN
     Route: 065
  18. OPSUMIT [Concomitant]
     Active Substance: MACITENTAN
     Indication: Pulmonary arterial hypertension
     Dosage: 10 MG, DAILY
     Route: 048
  19. DIGOXIN [Concomitant]
     Active Substance: DIGOXIN
     Indication: Product used for unknown indication
     Dosage: 0.125 MG, DAILY
     Route: 048
     Dates: end: 20180328
  20. DIGOXIN [Concomitant]
     Active Substance: DIGOXIN
     Dosage: Q0.125 MG, DAILY
     Route: 048
     Dates: start: 20180411
  21. BERAPROST SODIUM [Concomitant]
     Active Substance: BERAPROST SODIUM
     Indication: Pulmonary arterial hypertension
     Dosage: UNK UNK, UNKNOWN
     Route: 065
     Dates: end: 20171018
  22. AMOXICILLIN [Concomitant]
     Active Substance: AMOXICILLIN
     Indication: Dental care
     Dosage: 2 G, DAILY
     Route: 065
  23. INAVIR [LANINAMIVIR OCTANOATE] [Concomitant]
     Indication: Influenza
     Dosage: 40 MG, DAILY
     Route: 065
     Dates: start: 20180124
  24. CARBOCYSTEINE [Concomitant]
     Active Substance: CARBOCYSTEINE
     Indication: Product used for unknown indication
     Dosage: 2100 MG, DAILY
     Route: 065
     Dates: start: 20180124, end: 20180131
  25. ASVERIN (TIPEPIDINE HIBENZATE) [Concomitant]
     Active Substance: TIPEPIDINE HIBENZATE
     Indication: Product used for unknown indication
     Dosage: 60 MG, DAILY
     Route: 065
     Dates: start: 20180124, end: 20180131

REACTIONS (12)
  - Cardiac failure [Recovered/Resolved]
  - Hypotension [Recovered/Resolved]
  - Pneumonia [Recovered/Resolved]
  - Renal impairment [Recovering/Resolving]
  - Diarrhoea [Recovering/Resolving]
  - Upper respiratory tract inflammation [Recovered/Resolved]
  - Parotitis [Recovered/Resolved]
  - Renal impairment [Recovered/Resolved]
  - Gastroenteritis [Unknown]
  - Headache [Recovered/Resolved]
  - Erythema [Recovered/Resolved]
  - Hypotension [Recovered/Resolved]

NARRATIVE: CASE EVENT DATE: 20171101
